FAERS Safety Report 5215447-3 (Version None)
Quarter: 2007Q1

REPORT INFORMATION
  Report Type: 
  Country: None (occurrence: None)
  Receive Date: 20070119
  Receipt Date: 20070119
  Transmission Date: 20070707
  Serious: Yes (Other)
  Sender: FDA-Public Use
  Company Number: None

PATIENT
  Age: 50 Year
  Sex: Female
  Weight: 68.0396 kg

DRUGS (2)
  1. CEPHALEXIN [Suspect]
     Indication: INFECTION
     Dosage: 1 PILL 3 X DAILY PO
     Route: 048
     Dates: start: 20061124, end: 20061203
  2. CEPHALEXIN [Suspect]
     Indication: NASOPHARYNGITIS
     Dosage: 1 PILL 3 X DAILY PO
     Route: 048
     Dates: start: 20061124, end: 20061203

REACTIONS (4)
  - EATING DISORDER [None]
  - LIP SWELLING [None]
  - ORAL PAIN [None]
  - RASH [None]
